FAERS Safety Report 14965731 (Version 1)
Quarter: 2018Q2

REPORT INFORMATION
  Report Type: Spontaneous
  Country: US (occurrence: US)
  Receive Date: 20180602
  Receipt Date: 20180602
  Transmission Date: 20180711
  Serious: No
  Sender: FDA-Public Use
  Company Number: US-TEVA-2018-US-900264

PATIENT

DRUGS (1)
  1. QVAR REDIHALER [Suspect]
     Active Substance: BECLOMETHASONE DIPROPIONATE
     Dosage: INHALATION - AEROSOL
     Route: 065

REACTIONS (4)
  - Drug ineffective [Unknown]
  - Medication residue present [Unknown]
  - Wrong technique in product usage process [Unknown]
  - Device malfunction [Unknown]
